FAERS Safety Report 7586556-9 (Version None)
Quarter: 2011Q3

REPORT INFORMATION
  Report Type: 
  Country: None (occurrence: None)
  Receive Date: 20110701
  Receipt Date: 20110615
  Transmission Date: 20111222
  Serious: No
  Sender: FDA-Public Use
  Company Number: US-B.I. PHARMACEUTICALS,INC./RIDGEFIELD-2011-BP-15471BP

PATIENT
  Age: 71 Year
  Sex: Female

DRUGS (8)
  1. COUMADIN [Concomitant]
     Indication: ATRIAL FIBRILLATION
  2. METOPROLOL TARTRATE [Concomitant]
     Indication: HYPERTENSION
  3. BENICAR [Concomitant]
     Indication: HYPERTENSION
  4. LEVOXYL [Concomitant]
     Indication: HYPOTHYROIDISM
  5. LASIX [Concomitant]
     Indication: ATRIAL FIBRILLATION
  6. SPIRIVA [Suspect]
     Indication: CHRONIC OBSTRUCTIVE PULMONARY DISEASE
     Dosage: 18 MCG
     Route: 055
     Dates: start: 20110611, end: 20110611
  7. POTASSIUM [Concomitant]
     Indication: SUPPLEMENTATION THERAPY
  8. LIPITOR [Concomitant]
     Indication: BLOOD CHOLESTEROL INCREASED

REACTIONS (4)
  - DYSPNOEA [None]
  - RESPIRATORY RATE INCREASED [None]
  - WEIGHT INCREASED [None]
  - JOINT SWELLING [None]
